FAERS Safety Report 23520154 (Version 2)
Quarter: 2024Q1

REPORT INFORMATION
  Report Type: Spontaneous
  Country: BR (occurrence: BR)
  Receive Date: 20240214
  Receipt Date: 20240301
  Transmission Date: 20240410
  Serious: Yes (Hospitalization, Other)
  Sender: FDA-Public Use
  Company Number: BR-CHEPLA-2024001878

PATIENT
  Sex: Male
  Weight: 67 kg

DRUGS (6)
  1. CLONAZEPAM [Suspect]
     Active Substance: CLONAZEPAM
     Indication: Insomnia
     Dosage: RIVOTRIL 2.5 MG/ML-APPROXIMATELY 10 YEARS AGO (2014), 8-10 DROPS EVERY NIGHT
     Route: 048
     Dates: start: 2014, end: 2014
  2. CLONAZEPAM [Suspect]
     Active Substance: CLONAZEPAM
     Indication: Insomnia
     Dosage: APPROXIMATELY 8 YEARS AGO (2014),  EVERY NIGHT; UNKNOWN STRENGTH??DAILY DOSE: 1 DOSAGE FORM
     Route: 048
     Dates: start: 2014, end: 2014
  3. CLONAZEPAM [Suspect]
     Active Substance: CLONAZEPAM
     Indication: Insomnia
     Dosage: RIVOTRIL 2.5 MG/ML- APPROXIMATELY 10 YEARS AGO (2014), EVERY NIGHT
     Route: 048
     Dates: start: 2014
  4. CLONAZEPAM [Suspect]
     Active Substance: CLONAZEPAM
     Indication: Insomnia
     Dosage: RIVOTRIL 2.5 MG/ML- APPROXIMATELY 10 YEARS AGO (2014), EVERY NIGHT
     Route: 048
     Dates: start: 2014
  5. ESCITALOPRAM [Concomitant]
     Active Substance: ESCITALOPRAM OXALATE
     Indication: Depression
     Dosage: INITIALLY 10 MG, THEN 15 MG, THEN 20 MG; IN THE MORNING??DAILY DOSE: 1 DOSAGE FORM
     Route: 048
  6. ESCITALOPRAM [Concomitant]
     Active Substance: ESCITALOPRAM OXALATE
     Indication: Anxiety
     Dosage: INITIALLY 10 MG, THEN 15 MG, THEN 20 MG; IN THE MORNING??DAILY DOSE: 1 DOSAGE FORM
     Route: 048

REACTIONS (10)
  - Aortic stenosis [Recovered/Resolved]
  - Sluggishness [Recovered/Resolved]
  - Dysgeusia [Recovered/Resolved]
  - Speech disorder [Recovered/Resolved]
  - Wrong technique in product usage process [Not Recovered/Not Resolved]
  - Product use in unapproved indication [Recovered/Resolved]
  - Product dose omission issue [Recovered/Resolved]
  - Intentional product use issue [Not Recovered/Not Resolved]
  - Wrong dose [Recovered/Resolved]
  - Product taste abnormal [Unknown]

NARRATIVE: CASE EVENT DATE: 20140101
